FAERS Safety Report 4681499-2 (Version None)
Quarter: 2005Q2

REPORT INFORMATION
  Report Type: 
  Country: None (occurrence: None)
  Receive Date: 20050602
  Receipt Date: 20050518
  Transmission Date: 20051028
  Serious: Yes (Hospitalization)
  Sender: FDA-Public Use
  Company Number: IMP_0865_2005

PATIENT
  Age: 57 Year
  Sex: Male

DRUGS (2)
  1. BUPROPION [Suspect]
     Indication: DEPRESSION
  2. LINEZOLID [Suspect]
     Indication: GRAFT INFECTION

REACTIONS (4)
  - DRUG INTERACTION [None]
  - HAEMODYNAMIC INSTABILITY [None]
  - HYPERTENSION [None]
  - HYPERTENSIVE CRISIS [None]
